FAERS Safety Report 14140835 (Version 7)
Quarter: 2019Q2

REPORT INFORMATION
  Report Type: Spontaneous
  Country: US (occurrence: US)
  Receive Date: 20171030
  Receipt Date: 20190516
  Transmission Date: 20190711
  Serious: Yes (Hospitalization, Other)
  Sender: FDA-Public Use
  Company Number: US-BRISTOL-MYERS SQUIBB COMPANY-BMS-2017-094070

PATIENT
  Age: 51 Year
  Sex: Male
  Weight: 92.78 kg

DRUGS (2)
  1. YERVOY [Suspect]
     Active Substance: IPILIMUMAB
     Indication: METASTATIC MALIGNANT MELANOMA
     Dosage: 1025 MG, Q3WK
     Route: 042
     Dates: start: 201709
  2. YERVOY [Suspect]
     Active Substance: IPILIMUMAB
     Indication: PRODUCT USED FOR UNKNOWN INDICATION
     Dosage: 10MG/KG
     Route: 065
     Dates: start: 20171106

REACTIONS (5)
  - Sepsis [Unknown]
  - Weight decreased [Unknown]
  - Prescribed overdose [Unknown]
  - Off label use [Unknown]
  - Pneumonia [Unknown]

NARRATIVE: CASE EVENT DATE: 20190103
